FAERS Safety Report 11272044 (Version 1)
Quarter: 2015Q3

REPORT INFORMATION
  Report Type: Report from Study
  Country: JP (occurrence: None)
  Receive Date: 20150713
  Receipt Date: 20150713
  Transmission Date: 20151125
  Serious: Yes (Other)
  Sender: FDA-Public Use
  Company Number: ADR-2009-6979

PATIENT
  Age: 37 Year
  Sex: Female

DRUGS (5)
  1. GABALON INTRATHECAL (BACLOFEN INJECTION) [Suspect]
     Active Substance: BACLOFEN
     Indication: MUSCLE SPASTICITY
     Dosage: SEE B5
     Dates: start: 20080507
  2. BISOLVON [Concomitant]
     Active Substance: BROMHEXINE HYDROCHLORIDE
  3. FLOBARL [Concomitant]
  4. ICROL [Concomitant]
     Active Substance: CIMETIDINE
  5. DANTRIUM [Concomitant]
     Active Substance: DANTROLENE SODIUM

REACTIONS (5)
  - Hypotonia [None]
  - Muscular weakness [None]
  - Ileus paralytic [None]
  - Intracranial hypotension [None]
  - Urinary retention [None]

NARRATIVE: CASE EVENT DATE: 20080509
